FAERS Safety Report 9046873 (Version 1)
Quarter: 2013Q1

REPORT INFORMATION
  Report Type: Spontaneous
  Country: US (occurrence: None)
  Receive Date: 20130129
  Receipt Date: 20130129
  Transmission Date: 20140127
  Serious: Yes (Other)
  Sender: FDA-Public Use
  Company Number: None

PATIENT
  Age: 65 Year
  Sex: Female
  Weight: 65.77 kg

DRUGS (1)
  1. PROLIA [Suspect]
     Indication: OSTEOPOROSIS
     Dosage: 1 SHOT      2 TIMES YEAR
     Dates: start: 20121016, end: 20130422

REACTIONS (22)
  - Back pain [None]
  - Back pain [None]
  - Musculoskeletal chest pain [None]
  - Arthralgia [None]
  - Pain in extremity [None]
  - Pain in extremity [None]
  - Muscular weakness [None]
  - Jaw disorder [None]
  - Asthenia [None]
  - Fatigue [None]
  - Middle ear effusion [None]
  - Dry mouth [None]
  - Dry eye [None]
  - Eye pruritus [None]
  - Pruritus [None]
  - Oral herpes [None]
  - Stomatitis [None]
  - Arthralgia [None]
  - Abdominal distension [None]
  - Chronic obstructive pulmonary disease [None]
  - Initial insomnia [None]
  - Swelling [None]
